FAERS Safety Report 6401142-1 (Version None)
Quarter: 2009Q4

REPORT INFORMATION
  Report Type: 
  Country: None (occurrence: None)
  Receive Date: 20091015
  Receipt Date: 20070315
  Transmission Date: 20100525
  Serious: Yes (Disabling)
  Sender: FDA-Public Use
  Company Number: US-ASTRAZENECA-2006UW07735

PATIENT
  Sex: Female
  Weight: 78 kg

DRUGS (14)
  1. SEROQUEL [Suspect]
     Dosage: 50-500 MG
     Route: 048
     Dates: start: 20000512
  2. GLUCOPHAGE [Concomitant]
     Route: 048
  3. ALBUTEROL [Concomitant]
  4. FLOVENT [Concomitant]
     Dosage: 220 MCG 1-2 PUFFS A DAY
  5. VYTORIN [Concomitant]
     Dosage: 10-20 MG
     Route: 048
  6. NASONEX [Concomitant]
  7. GLUCOTROL [Concomitant]
     Route: 048
  8. ZESTRIL [Concomitant]
     Route: 048
  9. PAXIL [Concomitant]
     Route: 048
  10. HYDROXYZINE [Concomitant]
     Route: 048
  11. LIPITOR [Concomitant]
     Route: 048
  12. CLARITIN [Concomitant]
     Route: 048
  13. HYDROCHLOROTHIAZIDE [Concomitant]
     Route: 048
  14. VISTARIL [Concomitant]
     Route: 048

REACTIONS (1)
  - ILL-DEFINED DISORDER [None]
